FAERS Safety Report 6014349-2 (Version None)
Quarter: 2008Q4

REPORT INFORMATION
  Report Type: 
  Country: None (occurrence: None)
  Receive Date: 20081219
  Receipt Date: 20080429
  Transmission Date: 20090506
  Serious: No
  Sender: FDA-Public Use
  Company Number: A0725355A

PATIENT
  Age: 56 Year
  Sex: Male

DRUGS (5)
  1. AVODART [Suspect]
     Indication: BENIGN PROSTATIC HYPERPLASIA
     Dosage: .5MG ALTERNATE DAYS
     Route: 048
     Dates: start: 20060101
  2. LISINOPRIL [Concomitant]
  3. HYDROCHLOROTHIAZIDE [Concomitant]
  4. LOVASTATIN [Concomitant]
  5. RISPERDAL [Concomitant]

REACTIONS (1)
  - DIARRHOEA [None]
